FAERS Safety Report 5401289-2 (Version None)
Quarter: 2007Q3

REPORT INFORMATION
  Report Type: 
  Country: None (occurrence: None)
  Receive Date: 20070731
  Receipt Date: 20070724
  Transmission Date: 20080115
  Serious: Yes (Hospitalization)
  Sender: FDA-Public Use
  Company Number: FI-BRISTOL-MYERS SQUIBB COMPANY-13860861

PATIENT
  Age: 62 Year
  Sex: Female

DRUGS (11)
  1. TREXAN (ORION) [Suspect]
     Indication: RHEUMATOID ARTHRITIS
     Dates: start: 20020101
  2. HUMIRA [Suspect]
     Indication: RHEUMATOID ARTHRITIS
     Route: 058
     Dates: start: 20050825, end: 20070208
  3. FOLIC ACID [Concomitant]
     Dosage: ON DAYS WHEN RECEIVES TREXAN
  4. MEDROL [Concomitant]
  5. OXIKLORIN [Concomitant]
  6. METOPROLOL SUCCINATE [Concomitant]
  7. ARTHROTEC [Concomitant]
  8. PARACETAMOL [Concomitant]
  9. FOSAMAX [Concomitant]
  10. CALCICHEW D3 [Concomitant]
  11. SIMVASTATIN [Concomitant]

REACTIONS (1)
  - GASTROINTESTINAL STROMAL TUMOUR [None]
